FAERS Safety Report 9732808 (Version 2)
Quarter: 2013Q4

REPORT INFORMATION
  Report Type: Spontaneous
  Country: JP (occurrence: JP)
  Receive Date: 20131205
  Receipt Date: 20131205
  Transmission Date: 20140711
  Serious: Yes (Hospitalization)
  Sender: FDA-Public Use
  Company Number: JP-ASTRAZENECA-2013SE68125

PATIENT
  Age: 37 Year
  Sex: Female
  Weight: 45 kg

DRUGS (6)
  1. MARCAIN SPINAL [Suspect]
     Indication: SPINAL ANAESTHESIA
     Dosage: 8 MG, UNKNOWN, 1.6 ML
     Route: 037
     Dates: start: 20130827, end: 20130827
  2. GLYCERIN [Concomitant]
     Indication: PREOPERATIVE CARE
     Route: 054
     Dates: start: 20130826, end: 20130826
  3. GLYCERIN [Concomitant]
     Indication: PREOPERATIVE CARE
     Route: 054
     Dates: start: 20130827, end: 20130827
  4. ADONA [Concomitant]
     Indication: POST PROCEDURAL HAEMORRHAGE
     Route: 042
     Dates: start: 20130827, end: 20130827
  5. TRANSAMIN [Concomitant]
     Indication: POST PROCEDURAL HAEMORRHAGE
     Route: 042
     Dates: start: 20130827, end: 20130827
  6. CEFMETAZOLE SODIUM [Concomitant]
     Indication: INFECTION PROPHYLAXIS
     Route: 042
     Dates: start: 20130827, end: 20130827

REACTIONS (3)
  - Dizziness [Recovering/Resolving]
  - Headache [Recovering/Resolving]
  - Back pain [Recovering/Resolving]
